FAERS Safety Report 6900390-1 (Version None)
Quarter: 2010Q3

REPORT INFORMATION
  Report Type: 
  Country: None (occurrence: None)
  Receive Date: 20100803
  Receipt Date: 20100726
  Transmission Date: 20110219
  Serious: Yes (Other)
  Sender: FDA-Public Use
  Company Number: PHHY2008BR29186

PATIENT
  Sex: Female
  Weight: 68 kg

DRUGS (4)
  1. EXELON [Suspect]
     Indication: DEPRESSION
     Dosage: 9MG/5CM2 (1 PATCH PER DAY)
     Route: 062
  2. EXELON [Suspect]
     Indication: AGITATION
     Dosage: 18 MG/10CM2
     Route: 062
     Dates: start: 20090901
  3. EXELON [Suspect]
     Dosage: 18 MG/10CM2
     Route: 062
     Dates: start: 20090901
  4. ENALAPRIL MALEATE [Concomitant]

REACTIONS (9)
  - APPLICATION SITE ERYTHEMA [None]
  - APPLICATION SITE HYPERSENSITIVITY [None]
  - APPLICATION SITE PRURITUS [None]
  - DECREASED APPETITE [None]
  - DEPRESSION [None]
  - INSOMNIA [None]
  - PRURITUS [None]
  - RASH PAPULAR [None]
  - SYNCOPE [None]
